FAERS Safety Report 12231993 (Version 1)
Quarter: 2016Q2

REPORT INFORMATION
  Report Type: Spontaneous
  Country: US (occurrence: US)
  Receive Date: 20160401
  Receipt Date: 20160401
  Transmission Date: 20160815
  Serious: Yes (Other)
  Sender: FDA-Public Use
  Company Number: US-JNJCP-30000328778

PATIENT
  Sex: Female

DRUGS (1)
  1. NEUTROGENA OIL FREE ACNE WASH [Suspect]
     Active Substance: SALICYLIC ACID
     Indication: PRODUCT USED FOR UNKNOWN INDICATION
     Route: 061
     Dates: start: 20160311

REACTIONS (4)
  - Application site burn [Unknown]
  - Application site swelling [Unknown]
  - Application site pain [Unknown]
  - Application site warmth [Unknown]

NARRATIVE: CASE EVENT DATE: 20160312
